FAERS Safety Report 6522113-0 (Version None)
Quarter: 2009Q4

REPORT INFORMATION
  Report Type: 
  Country: None (occurrence: None)
  Receive Date: 20091229
  Receipt Date: 20091229
  Transmission Date: 20100525
  Serious: Yes (Hospitalization)
  Sender: FDA-Public Use
  Company Number: None

PATIENT
  Sex: Male
  Weight: 113.9 kg

DRUGS (18)
  1. BUPROPION HCL [Suspect]
     Indication: DEPRESSION
     Dosage: UNKNOWN
     Route: 065
  2. ARMODIAFITRIL 250 MG [Suspect]
     Dosage: UNKNOWN
     Route: 065
  3. ADVAIR DISKUS 100/50 [Concomitant]
  4. ALLEGRA D 24 HOUR [Concomitant]
  5. ZOLPIDEM TARTRATE [Concomitant]
  6. DOCUSATE SODIUM [Concomitant]
  7. TRIAMTERE/HCTZ [Concomitant]
  8. LAMOTRIGINE [Concomitant]
  9. FUROSEMIDE [Concomitant]
  10. ATORVASTATIN CALCIUM [Concomitant]
  11. LORAZEPAM [Concomitant]
  12. M.V.I. [Concomitant]
  13. NASONEX [Concomitant]
  14. NUVIGIL [Concomitant]
  15. OMEPRAZOLE [Concomitant]
  16. PROVIGIL [Concomitant]
  17. METOPROLOL TARTRATE [Concomitant]
  18. SILDENAFIL [Concomitant]

REACTIONS (3)
  - GAIT DISTURBANCE [None]
  - INCORRECT DOSE ADMINISTERED [None]
  - SPEECH DISORDER [None]
